FAERS Safety Report 13814710 (Version 1)
Quarter: 2017Q3

REPORT INFORMATION
  Report Type: Spontaneous
  Country: US (occurrence: US)
  Receive Date: 20170731
  Receipt Date: 20170731
  Transmission Date: 20171127
  Serious: Yes (Disabling, Other)
  Sender: FDA-Public Use
  Company Number: None

PATIENT
  Age: 89 Year
  Sex: Male
  Weight: 102.97 kg

DRUGS (13)
  1. AMIODARONE HCL [Suspect]
     Active Substance: AMIODARONE HYDROCHLORIDE
     Indication: PULSE ABNORMAL
     Dosage: ?          QUANTITY:TR?A?TI;?
     Route: 048
     Dates: start: 20170605, end: 20170703
  2. FERROUS SULFATE. [Concomitant]
     Active Substance: FERROUS SULFATE
  3. COLCHICINE. [Concomitant]
     Active Substance: COLCHICINE
  4. THERAGRAN [Concomitant]
     Active Substance: VITAMINS
  5. AMIODARONE HCL [Suspect]
     Active Substance: AMIODARONE HYDROCHLORIDE
     Indication: HYPOTENSION
     Dosage: ?          QUANTITY:TR?A?TI;?
     Route: 048
     Dates: start: 20170605, end: 20170703
  6. BUMETANIDE. [Concomitant]
     Active Substance: BUMETANIDE
  7. TAMSULOSIN [Concomitant]
     Active Substance: TAMSULOSIN
  8. ASCORBIC ACID. [Concomitant]
     Active Substance: ASCORBIC ACID
  9. CARVEDILOL. [Concomitant]
     Active Substance: CARVEDILOL
  10. SENSIPAR [Concomitant]
     Active Substance: CINACALCET HYDROCHLORIDE
  11. ASPIRIN. [Concomitant]
     Active Substance: ASPIRIN
  12. CHOLECALCIFEROL [Concomitant]
     Active Substance: CHOLECALCIFEROL
  13. DOCUSATE SODIUM. [Concomitant]
     Active Substance: DOCUSATE SODIUM

REACTIONS (3)
  - Decreased appetite [None]
  - Ageusia [None]
  - Weight decreased [None]

NARRATIVE: CASE EVENT DATE: 20170605
